FAERS Safety Report 5736736-X (Version None)
Quarter: 2008Q2

REPORT INFORMATION
  Report Type: 
  Country: None (occurrence: None)
  Receive Date: 20080513
  Receipt Date: 20080502
  Transmission Date: 20081010
  Serious: Yes (Other)
  Sender: FDA-Public Use
  Company Number: PHHY2008AU07040

PATIENT
  Age: 80 Year
  Sex: Male
  Weight: 65.1 kg

DRUGS (9)
  1. EXJADE [Suspect]
     Indication: CHELATION THERAPY
  2. DESFERRIOXAMINE MESYLATE [Suspect]
     Indication: CHELATION THERAPY
     Dosage: 500 MG, BID
  3. KEFLEX [Concomitant]
  4. LIPITOR [Concomitant]
  5. MAXOLON [Concomitant]
  6. METOPROLOL TARTRATE [Concomitant]
  7. OROXINE [Concomitant]
  8. PANAMAX [Concomitant]
  9. PANTOPRAZOLE SODIUM [Concomitant]

REACTIONS (2)
  - ALANINE AMINOTRANSFERASE INCREASED [None]
  - BLOOD CREATININE INCREASED [None]
